FAERS Safety Report 20668180 (Version 1)
Quarter: 2022Q2

REPORT INFORMATION
  Report Type: Spontaneous
  Country: US (occurrence: US)
  Receive Date: 20220404
  Receipt Date: 20220404
  Transmission Date: 20220720
  Serious: Yes (Other)
  Sender: FDA-Public Use
  Company Number: US-SA-SAC20220401000136

PATIENT
  Age: 72 Year
  Sex: Male

DRUGS (3)
  1. DUPIXENT [Suspect]
     Active Substance: DUPILUMAB
     Indication: Dermatitis atopic
     Dosage: 300 MG, QOW
     Route: 058
  2. DAPSONE [Suspect]
     Active Substance: DAPSONE
     Indication: Eczema
     Dosage: 25 MG
  3. DAPSONE [Suspect]
     Active Substance: DAPSONE
     Indication: Dermatitis
     Dosage: 100 MG

REACTIONS (9)
  - Skin cancer [Unknown]
  - Skin ulcer [Unknown]
  - Pruritus [Unknown]
  - Memory impairment [Unknown]
  - Condition aggravated [Unknown]
  - Confusional state [Unknown]
  - Sleep disorder [Unknown]
  - Fatigue [Unknown]
  - Adverse drug reaction [Unknown]
